FAERS Safety Report 5064454-2 (Version None)
Quarter: 2006Q3

REPORT INFORMATION
  Report Type: 
  Country: None (occurrence: None)
  Receive Date: 20060725
  Receipt Date: 20060710
  Transmission Date: 20061208
  Serious: Yes (Hospitalization)
  Sender: FDA-Public Use
  Company Number: US-2006-015041

PATIENT
  Age: 63 Year
  Sex: Female
  Weight: 82 kg

DRUGS (14)
  1. BETASERON [Suspect]
     Indication: RELAPSING-REMITTING MULTIPLE SCLEROSIS
     Dosage: 8 MIU, SUBCUTANEOUS
     Route: 058
     Dates: start: 20060426, end: 20060609
  2. COUMADIN/WARFARIN/ (WARFARIN) TABLET [Suspect]
     Indication: RELAPSING-REMITTING MULTIPLE SCLEROSIS
     Dosage: 2.5 MG, 1 X/DAY M-F, 5X/WEEK, ORAL
     Route: 048
  3. AMBIEN [Concomitant]
  4. DIGOXIN [Concomitant]
  5. DIOVAN [Concomitant]
  6. SYNTEST (METHYLTESTOSTERONE, ESTROGENS ESTERIFIED) [Concomitant]
  7. HYDROCHLOROTHIAZIDE [Concomitant]
  8. KLOR-CON [Concomitant]
  9. LIPITOR [Concomitant]
  10. PAXIL [Concomitant]
  11. TOPROL-XL [Concomitant]
  12. ESTRACE VAGINAL CREAM 0.1MG/GM CREAM [Concomitant]
  13. ATROVENT (IPRATROPOIUM BROMIDE) SPRAY [Concomitant]
  14. FLONASE 0.05% FLUTICASONE PROPIONATE) SPRAY [Concomitant]

REACTIONS (2)
  - PANCREATIC HAEMORRHAGE [None]
  - PROTHROMBIN TIME PROLONGED [None]
